FAERS Safety Report 15936075 (Version 1)
Quarter: 2019Q1

REPORT INFORMATION
  Report Type: Spontaneous
  Country: FR (occurrence: FR)
  Receive Date: 20190208
  Receipt Date: 20190208
  Transmission Date: 20190417
  Serious: Yes (Other)
  Sender: FDA-Public Use
  Company Number: FR-TEVA-2019-FR-1008185

PATIENT
  Age: 69 Year
  Sex: Female
  Weight: 92 kg

DRUGS (19)
  1. GAVISCON [Concomitant]
     Active Substance: ALUMINUM HYDROXIDE\MAGNESIUM CARBONATE
  2. KARDEGIC [Concomitant]
     Active Substance: ASPIRIN DL-LYSINE
  3. PRAVASTATINE SODIQUE [Concomitant]
     Active Substance: PRAVASTATIN SODIUM
  4. LOVENOX [Concomitant]
     Active Substance: ENOXAPARIN SODIUM
  5. NEFOPAM (CHLORHYDRATE DE) [Concomitant]
     Active Substance: NEFOPAM HYDROCHLORIDE
  6. CLOXACILLINE [Suspect]
     Active Substance: CLOXACILLIN
     Indication: STAPHYLOCOCCAL INFECTION
     Dosage: 12 GRAM DAILY;
     Route: 042
     Dates: start: 20190102, end: 20190105
  7. ARIPIPRAZOLE. [Concomitant]
     Active Substance: ARIPIPRAZOLE
  8. OXAZEPAM. [Concomitant]
     Active Substance: OXAZEPAM
  9. PANTOPRAZOLE [Concomitant]
     Active Substance: PANTOPRAZOLE
  10. SPIRONOLACTONE. [Concomitant]
     Active Substance: SPIRONOLACTONE
  11. PARACETAMOL [Concomitant]
     Active Substance: ACETAMINOPHEN
  12. CETIRIZINE (DICHLORHYDRATE DE) [Concomitant]
     Active Substance: CETIRIZINE HYDROCHLORIDE
  13. FUROSEMIDE. [Concomitant]
     Active Substance: FUROSEMIDE
  14. VANCOMYCINE [Suspect]
     Active Substance: VANCOMYCIN
     Indication: STAPHYLOCOCCAL INFECTION
     Dosage: 2 GRAM DAILY;
     Route: 042
     Dates: start: 20181221, end: 20190101
  15. OFLOXACINE [Suspect]
     Active Substance: OFLOXACIN
     Indication: STAPHYLOCOCCAL INFECTION
     Dosage: 400 MILLIGRAM DAILY;
     Route: 048
     Dates: start: 20190102, end: 20190105
  16. RIFAMPICINE [Suspect]
     Active Substance: RIFAMPIN
     Indication: STAPHYLOCOCCAL INFECTION
     Dosage: 1200 MILLIGRAM DAILY;
     Route: 042
     Dates: start: 20181228, end: 20190101
  17. GENTAMICINE [Suspect]
     Active Substance: GENTAMICIN
     Indication: STAPHYLOCOCCAL INFECTION
     Dosage: 150 MILLIGRAM DAILY;
     Route: 042
     Dates: start: 20181221, end: 20181224
  18. RAMIPRIL. [Concomitant]
     Active Substance: RAMIPRIL
  19. MIRTAZAPINE. [Concomitant]
     Active Substance: MIRTAZAPINE

REACTIONS (4)
  - Erythema [Recovered/Resolved]
  - Urticaria [Recovered/Resolved]
  - Skin reaction [Recovered/Resolved]
  - Burning sensation [Recovered/Resolved]

NARRATIVE: CASE EVENT DATE: 201901
